FAERS Safety Report 4387129-1 (Version None)
Quarter: 2004Q2

REPORT INFORMATION
  Report Type: 
  Country: None (occurrence: None)
  Receive Date: 20040630
  Receipt Date: 20040311
  Transmission Date: 20050107
  Serious: No
  Sender: FDA-Public Use
  Company Number: US-GLAXOSMITHKLINE-A0502378A

PATIENT
  Age: 76 Year
  Sex: Female

DRUGS (4)
  1. ADVAIR HFA [Suspect]
     Dosage: 1PUFF TWICE PER DAY
     Route: 055
  2. ATROVENT [Concomitant]
  3. SINGULAIR [Concomitant]
  4. PRILOSEC [Concomitant]

REACTIONS (2)
  - COUGH [None]
  - DYSPHONIA [None]
